FAERS Safety Report 9439127 (Version 3)
Quarter: 2014Q3

REPORT INFORMATION
  Report Type: Spontaneous
  Country: JP (occurrence: JP)
  Receive Date: 20130802
  Receipt Date: 20140901
  Transmission Date: 20150326
  Serious: Yes (Life-Threatening, Hospitalization)
  Sender: FDA-Public Use
  Company Number: JP-ASTRAZENECA-2013SE59567

PATIENT
  Age: 26 Year
  Sex: Male
  Weight: 43 kg

DRUGS (10)
  1. AMLODIPINE [Suspect]
     Active Substance: AMLODIPINE BESYLATE
     Indication: HYPERTENSION
     Route: 048
     Dates: start: 20130727, end: 20130727
  2. BUFFERIN COMBINATION TABLET A [Concomitant]
     Route: 048
     Dates: start: 20130322
  3. GLAKAY [Concomitant]
     Route: 048
     Dates: start: 20130322
  4. ARGAMATE [Concomitant]
     Active Substance: POLYSTYRENE
     Route: 048
     Dates: start: 20130322
  5. ROCALTROL [Concomitant]
     Active Substance: CALCITRIOL
     Route: 048
     Dates: start: 20130322
  6. AMLODIPINE [Suspect]
     Active Substance: AMLODIPINE BESYLATE
     Indication: HYPERTENSION
     Route: 048
     Dates: end: 20130726
  7. CALTAN [Concomitant]
     Active Substance: CALCIUM CARBONATE
     Route: 048
     Dates: start: 20130322
  8. BLOPRESS [Suspect]
     Active Substance: CANDESARTAN CILEXETIL
     Indication: HYPERTENSION
     Route: 048
     Dates: start: 20130727, end: 20130727
  9. BLOPRESS [Suspect]
     Active Substance: CANDESARTAN CILEXETIL
     Indication: HYPERTENSION
     Route: 048
     Dates: start: 20130322, end: 20130726
  10. FOSRENOL [Concomitant]
     Active Substance: LANTHANUM CARBONATE
     Route: 048
     Dates: start: 20130322

REACTIONS (10)
  - Shock [Recovering/Resolving]
  - Intentional self-injury [None]
  - Intentional overdose [Recovering/Resolving]
  - Depressed level of consciousness [None]
  - Continuous haemodiafiltration [None]
  - Hyperkalaemia [Recovering/Resolving]
  - Intentional overdose [None]
  - Clonic convulsion [None]
  - Pulmonary oedema [None]
  - Peripheral coldness [None]

NARRATIVE: CASE EVENT DATE: 20130727
